FAERS Safety Report 11435014 (Version 1)
Quarter: 2015Q3

REPORT INFORMATION
  Report Type: Spontaneous
  Country: ES (occurrence: ES)
  Receive Date: 20150831
  Receipt Date: 20150831
  Transmission Date: 20151125
  Serious: Yes (Hospitalization, Disabling)
  Sender: FDA-Public Use
  Company Number: ES-MYLANLABS-2015M1029118

PATIENT

DRUGS (1)
  1. CABERGOLINE. [Suspect]
     Active Substance: CABERGOLINE
     Indication: PROLACTINOMA
     Dosage: 1 MICROG PER WEEK
     Route: 065

REACTIONS (1)
  - Brain herniation [Unknown]
